FAERS Safety Report 4550444-2 (Version None)
Quarter: 2005Q1

REPORT INFORMATION
  Report Type: 
  Country: None (occurrence: None)
  Receive Date: 20050112
  Receipt Date: 20050105
  Transmission Date: 20050727
  Serious: Yes (Other)
  Sender: FDA-Public Use
  Company Number: GB-GLAXOSMITHKLINE-B0363587A

PATIENT
  Sex: Female
  Weight: 82 kg

DRUGS (3)
  1. ZOFRAN [Suspect]
     Indication: VOMITING
     Dosage: 8MG TWICE PER DAY
     Route: 048
     Dates: start: 20041104, end: 20041128
  2. DOCETAXEL [Concomitant]
     Dosage: 150MG PER DAY
     Route: 042
     Dates: start: 20041104, end: 20041120
  3. ACETAMINOPHEN [Concomitant]
     Indication: PAIN
     Dosage: 500MG PER DAY
     Route: 048
     Dates: start: 20041104

REACTIONS (1)
  - ILEUS PARALYTIC [None]
